FAERS Safety Report 11043179 (Version 2)
Quarter: 2018Q2

REPORT INFORMATION
  Report Type: Report from Study
  Country: DE (occurrence: DE)
  Receive Date: 20150417
  Receipt Date: 20180424
  Transmission Date: 20180711
  Serious: Yes (Death, Hospitalization)
  Sender: FDA-Public Use
  Company Number: DE-ROCHE-1311880

PATIENT
  Age: 55 Year
  Sex: Female
  Weight: 60 kg

DRUGS (16)
  1. NEULASTA [Concomitant]
     Active Substance: PEGFILGRASTIM
     Indication: LEUKOPENIA
     Dosage: ONCE
     Route: 058
     Dates: start: 20140109, end: 20140109
  2. PANTOPRAZOL [Concomitant]
     Active Substance: PANTOPRAZOLE SODIUM
     Indication: PROPHYLAXIS AGAINST GASTROINTESTINAL ULCER
     Route: 048
     Dates: start: 20140522, end: 20150214
  3. MCP [Concomitant]
     Active Substance: METOCLOPRAMIDE HYDROCHLORIDE
     Indication: VOMITING
  4. TOREM [Concomitant]
     Active Substance: TORSEMIDE
     Route: 048
     Dates: start: 20150205, end: 20150214
  5. DEXAMETHASON [Concomitant]
     Active Substance: DEXAMETHASONE
     Indication: BREAST CANCER
     Route: 042
     Dates: start: 20130110, end: 20130411
  6. ZOMETA [Concomitant]
     Active Substance: ZOLEDRONIC ACID
     Route: 042
     Dates: start: 20140116, end: 20150214
  7. BEVACIZUMAB. [Suspect]
     Active Substance: BEVACIZUMAB
     Indication: BREAST CANCER
     Route: 042
     Dates: start: 20130207, end: 20131017
  8. XARELTO [Concomitant]
     Active Substance: RIVAROXABAN
     Route: 048
     Dates: start: 20140828, end: 20150214
  9. VOMEX (UNK INGREDIENTS) [Concomitant]
     Indication: NAUSEA
     Route: 048
     Dates: start: 20150115, end: 20150214
  10. RANITIDIN [Concomitant]
     Active Substance: RANITIDINE HYDROCHLORIDE
     Indication: ABDOMINAL PAIN UPPER
     Route: 042
     Dates: start: 20130110, end: 20130411
  11. MCP [Concomitant]
     Active Substance: METOCLOPRAMIDE HYDROCHLORIDE
     Indication: NAUSEA
     Route: 048
     Dates: start: 20150115, end: 20150214
  12. VOMEX (UNK INGREDIENTS) [Concomitant]
     Indication: VOMITING
  13. GRANISETRON [Concomitant]
     Active Substance: GRANISETRON
     Indication: VOMITING
  14. GRANISETRON [Concomitant]
     Active Substance: GRANISETRON
     Indication: NAUSEA
     Route: 042
     Dates: start: 20130110, end: 20130411
  15. CIPROBAY [Concomitant]
     Active Substance: CIPROFLOXACIN
     Indication: INFECTION
     Route: 048
     Dates: start: 20140508, end: 20140518
  16. PACLITAXEL. [Concomitant]
     Active Substance: PACLITAXEL
     Indication: BREAST CANCER
     Route: 042
     Dates: start: 20130110, end: 20130411

REACTIONS (3)
  - Hepatic pain [Recovered/Resolved]
  - Hepatic failure [Fatal]
  - Perforation [Fatal]

NARRATIVE: CASE EVENT DATE: 20131029
